FAERS Safety Report 8336893-5 (Version None)
Quarter: 2012Q2

REPORT INFORMATION
  Report Type: 
  Country: None (occurrence: None)
  Receive Date: 20120501
  Receipt Date: 20120419
  Transmission Date: 20120825
  Serious: Yes (Hospitalization)
  Sender: FDA-Public Use
  Company Number: DSA_54873_2012

PATIENT
  Age: 7 Year
  Sex: Male

DRUGS (1)
  1. DILTIAZEM HCL [Suspect]
     Indication: PRODUCT USED FOR UNKNOWN INDICATION
     Dosage: (ONCE (NOT THE PRESCRIBED AMOUNT) ORAL)
     Route: 048

REACTIONS (14)
  - VOMITING [None]
  - FATIGUE [None]
  - MENTAL STATUS CHANGES [None]
  - RENAL FAILURE ACUTE [None]
  - SLUGGISHNESS [None]
  - CONFUSIONAL STATE [None]
  - SHOCK [None]
  - TREMOR [None]
  - PULSE PRESSURE INCREASED [None]
  - IRRITABILITY [None]
  - NODAL RHYTHM [None]
  - MULTI-ORGAN DISORDER [None]
  - DIABETIC KETOACIDOSIS [None]
  - MUCOSAL DRYNESS [None]
